FAERS Safety Report 8520364 (Version 6)
Quarter: 2013Q1

REPORT INFORMATION
  Report Type: Report from Study
  Country: JP (occurrence: JP)
  Receive Date: 20120418
  Receipt Date: 20130213
  Transmission Date: 20140127
  Serious: Yes (Hospitalization)
  Sender: FDA-Public Use
  Company Number: JP-GLAXOSMITHKLINE-B0795392A

PATIENT
  Age: 32 Year
  Sex: Female
  Weight: 51 kg

DRUGS (11)
  1. LAMICTAL [Suspect]
     Indication: BIPOLAR II DISORDER
     Route: 048
     Dates: start: 20120312, end: 20120325
  2. LAMICTAL [Suspect]
     Indication: BIPOLAR II DISORDER
     Dosage: 25MG TWICE PER DAY
     Route: 048
     Dates: start: 20120327, end: 20120330
  3. LAMICTAL [Suspect]
     Indication: BIPOLAR II DISORDER
     Route: 048
     Dates: start: 20120331, end: 20120409
  4. SEROQUEL [Concomitant]
     Indication: BIPOLAR I DISORDER
     Route: 048
  5. SEROQUEL [Concomitant]
     Indication: BIPOLAR I DISORDER
     Route: 048
  6. MEILAX [Concomitant]
     Dosage: 1MG PER DAY
     Route: 048
  7. GOODMIN [Concomitant]
     Dosage: .25MG TWICE PER DAY
     Route: 048
  8. GASTER D [Concomitant]
     Dosage: 20MG TWICE PER DAY
     Route: 048
  9. XYZAL [Concomitant]
     Dosage: 5MG PER DAY
     Route: 048
  10. SENNOSIDE [Concomitant]
     Dosage: 3IUAX PER DAY
     Route: 048
  11. ALLEGRA [Concomitant]
     Route: 048

REACTIONS (7)
  - Erythema [Recovering/Resolving]
  - White blood cell count decreased [Recovering/Resolving]
  - Face oedema [Recovering/Resolving]
  - Pyrexia [Recovering/Resolving]
  - Lip erosion [Recovering/Resolving]
  - Stomatitis [Recovering/Resolving]
  - Malaise [Recovering/Resolving]
